FAERS Safety Report 4721869-7 (Version None)
Quarter: 2005Q3

REPORT INFORMATION
  Report Type: 
  Country: None (occurrence: None)
  Receive Date: 20050721
  Receipt Date: 20050517
  Transmission Date: 20060218
  Serious: No
  Sender: FDA-Public Use
  Company Number: US-BRISTOL-MYERS SQUIBB COMPANY-12971529

PATIENT
  Age: 66 Year
  Sex: Female
  Weight: 91 kg

DRUGS (18)
  1. COUMADIN [Suspect]
     Indication: PULMONARY THROMBOSIS
     Dates: start: 20041201, end: 20050515
  2. PLAVIX [Suspect]
     Indication: CATHETERISATION CARDIAC
     Dosage: INSTRUCTED TO TAKE 4 TABS 16-MAY-2005, THEN 1 TAB DAILY UNTIL 5 DAYS BEFORE THE PROCEDURE
     Dates: start: 20050516
  3. PRILOSEC [Concomitant]
  4. DIOVAN [Concomitant]
  5. PROZAC [Concomitant]
  6. VALIUM [Concomitant]
  7. ALTACE [Concomitant]
  8. CLONIDINE [Concomitant]
     Dosage: .02 MG OR .04 MG ^UP^ TO TID
  9. NORVASC [Concomitant]
  10. LANTUS [Concomitant]
  11. DARVOCET-N 100 [Concomitant]
  12. XANAX [Concomitant]
  13. ZETIA [Concomitant]
  14. METFORMIN HCL [Concomitant]
  15. THYROID TAB [Concomitant]
  16. LOPID [Concomitant]
  17. LASIX [Concomitant]
  18. ASPIRIN [Concomitant]

REACTIONS (3)
  - EPISTAXIS [None]
  - EYE HAEMORRHAGE [None]
  - FEELING ABNORMAL [None]
